FAERS Safety Report 9082960 (Version 3)
Quarter: 2013Q2

REPORT INFORMATION
  Report Type: Spontaneous
  Country: GB (occurrence: GB)
  Receive Date: 20130218
  Receipt Date: 20130529
  Transmission Date: 20140414
  Serious: Yes (Death, Other)
  Sender: FDA-Public Use
  Company Number: PHFR2012GB006411

PATIENT
  Age: 85 Year
  Sex: Female

DRUGS (15)
  1. CLOZARIL [Suspect]
     Indication: SCHIZOPHRENIA
     Dosage: 75 MG, UNK
     Route: 048
     Dates: start: 20030222, end: 20130118
  2. CITALOPRAM [Concomitant]
     Indication: DEPRESSION
     Dosage: 30 MG, DAILY
     Route: 048
  3. ZOPICLONE [Concomitant]
     Indication: SLEEP DISORDER
     Dosage: 7.5 MG, NOCTE
     Route: 048
  4. SYMBICORT [Concomitant]
     Indication: CHRONIC OBSTRUCTIVE PULMONARY DISEASE
     Dosage: 1 DF, BID
  5. SALBUTAMOL [Concomitant]
     Indication: CHRONIC OBSTRUCTIVE PULMONARY DISEASE
     Dosage: 2 DF, UNK
  6. TIOTROPIUM [Concomitant]
     Indication: CHRONIC OBSTRUCTIVE PULMONARY DISEASE
     Dosage: 18 UG, UNK
  7. CARBOCISTEINE [Concomitant]
     Dosage: 375 MG,
  8. ADCAL D3 [Concomitant]
     Indication: OSTEOPOROSIS
     Dosage: NOCTE
  9. ALENDRONATE [Concomitant]
     Indication: OSTEOPOROSIS
     Dosage: 70 MG, WEEKLY
  10. FERROUS SULFATE [Concomitant]
     Indication: ANAEMIA
     Dosage: 200 MG, TID
  11. ASPIRIN [Concomitant]
     Dosage: 75 MG, MANE
  12. OMEPRAZOLE [Concomitant]
     Dosage: 20 MG, MANE
  13. BUMETANIDE [Concomitant]
     Dosage: 1 MG, MANE
  14. AZITHROMYCIN [Concomitant]
     Dosage: 250 MG, THREE TIMES WEEKLY
  15. LATANOPROST [Concomitant]

REACTIONS (10)
  - Multi-organ failure [Fatal]
  - Renal failure [Fatal]
  - Cardiac failure [Fatal]
  - Chronic obstructive pulmonary disease [Fatal]
  - Pneumonia [Fatal]
  - Lower respiratory tract infection [Fatal]
  - Sepsis [Unknown]
  - Myocardial infarction [Recovered/Resolved with Sequelae]
  - Differential white blood cell count abnormal [Recovered/Resolved]
  - Eosinophil count increased [Unknown]
